FAERS Safety Report 9394993 (Version 1)
Quarter: 2013Q3

REPORT INFORMATION
  Report Type: Spontaneous
  Country: US (occurrence: US)
  Receive Date: 20130711
  Receipt Date: 20130711
  Transmission Date: 20140515
  Serious: Yes (Hospitalization)
  Sender: FDA-Public Use
  Company Number: US-SANOFI-AVENTIS-2013SA069092

PATIENT
  Age: 74 Year
  Sex: Female
  Weight: 36.28 kg

DRUGS (4)
  1. ALLEGRA [Suspect]
     Indication: HYPERSENSITIVITY
     Dosage: TAKEN FROM - FOR YEARS
     Route: 048
  2. ALLEGRA [Suspect]
     Indication: SNEEZING
     Dosage: TAKEN FROM - FOR YEARS
     Route: 048
  3. ALLEGRA [Suspect]
     Indication: HYPERSENSITIVITY
     Dosage: TAKEN FROM - FOR YEARS
     Route: 048
  4. ALLEGRA [Suspect]
     Indication: SNEEZING
     Dosage: TAKEN FROM - FOR YEARS
     Route: 048

REACTIONS (2)
  - Colon cancer [Unknown]
  - Loss of consciousness [Unknown]
